FAERS Safety Report 15147238 (Version 1)
Quarter: 2018Q3

REPORT INFORMATION
  Report Type: Report from Study
  Country: IT (occurrence: IT)
  Receive Date: 20180716
  Receipt Date: 20180716
  Transmission Date: 20181010
  Serious: Yes (Other)
  Sender: FDA-Public Use
  Company Number: IT-TEVA-2018-IT-926159

PATIENT
  Age: 63 Year
  Sex: Female

DRUGS (8)
  1. CARDIOASPIRIN 100 MG COMPRESSE GASTRORESISTENTI [Concomitant]
     Active Substance: ASPIRIN
  2. ADALAT 10 MG CAPSULE MOLLI [Concomitant]
  3. AMOXICILLINA/ACIDO CLAVULANICO [Suspect]
     Active Substance: AMOXICILLIN\CLAVULANIC ACID
     Indication: BRONCHITIS
     Route: 048
     Dates: start: 20180611, end: 20180611
  4. LOBIVON 5 MG COMPRESSE [Concomitant]
  5. PLAUNAZIDE 20 MG/12,5 MG COMPRESSE RIVESTITE CON FILM [Concomitant]
  6. PRAVASTATIN SODIUM. [Concomitant]
     Active Substance: PRAVASTATIN SODIUM
  7. RIOPAN 800 MG COMPRESSE MASTICABILI [Concomitant]
  8. GLUCOPHAGE 500 MG COMPRESSE RIVESTITE CON FILM [Concomitant]

REACTIONS (4)
  - Conjunctival hyperaemia [Recovering/Resolving]
  - Pruritus generalised [Recovering/Resolving]
  - Hyperaemia [Recovering/Resolving]
  - Periorbital oedema [Recovering/Resolving]

NARRATIVE: CASE EVENT DATE: 20180611
